FAERS Safety Report 18150704 (Version 1)
Quarter: 2020Q3

REPORT INFORMATION
  Report Type: Spontaneous
  Country: CN (occurrence: CN)
  Receive Date: 20200814
  Receipt Date: 20200814
  Transmission Date: 20201103
  Serious: Yes (Hospitalization)
  Sender: FDA-Public Use
  Company Number: CN-EISAI MEDICAL RESEARCH-EC-2020-078697

PATIENT
  Age: 42 Year
  Sex: Female
  Weight: 50 kg

DRUGS (17)
  1. RABEPRAZOLE [Suspect]
     Active Substance: RABEPRAZOLE
     Indication: PROPHYLAXIS AGAINST GASTROINTESTINAL ULCER
     Route: 048
     Dates: start: 20200709, end: 20200720
  2. COMPOUND VITAMIN B [Concomitant]
     Indication: VITAMIN SUPPLEMENTATION
     Route: 048
     Dates: start: 20200709, end: 20200731
  3. CALCIUM CARBONATE AND VITAMIN D3 [Concomitant]
     Active Substance: CALCIUM CARBONATE\CHOLECALCIFEROL
     Indication: MINERAL SUPPLEMENTATION
     Route: 048
     Dates: start: 20200709, end: 20200731
  4. REBAMIPIDE [Concomitant]
     Active Substance: REBAMIPIDE
     Indication: PROPHYLAXIS AGAINST GASTROINTESTINAL ULCER
     Route: 048
     Dates: start: 20200709, end: 20200731
  5. GABAPENTIN. [Concomitant]
     Active Substance: GABAPENTIN
     Indication: ANALGESIC THERAPY
     Route: 048
     Dates: start: 20200709, end: 20200714
  6. VITAMIN B6 [Concomitant]
     Active Substance: PYRIDOXINE HYDROCHLORIDE
     Indication: VITAMIN SUPPLEMENTATION
     Route: 041
     Dates: start: 20200709, end: 20200730
  7. VITAMIN C [Concomitant]
     Active Substance: ASCORBIC ACID
     Indication: VITAMIN SUPPLEMENTATION
     Route: 041
     Dates: start: 20200709, end: 20200730
  8. DEXZOPICLONE [Concomitant]
     Indication: INSOMNIA
     Route: 048
     Dates: start: 20200710, end: 20200731
  9. SOLU?MEDROL [Suspect]
     Active Substance: METHYLPREDNISOLONE SODIUM SUCCINATE
     Dosage: 240 MG DAILY, FREQUENCY UNKNOWN
     Route: 041
     Dates: start: 20200712, end: 20200714
  10. SOLU?MEDROL [Suspect]
     Active Substance: METHYLPREDNISOLONE SODIUM SUCCINATE
     Dosage: 120 MG DAILY, FREQUENCY UNKNOWN
     Route: 041
     Dates: start: 20200715, end: 20200717
  11. MECOBALAMIN [Concomitant]
     Active Substance: METHYLCOBALAMIN
     Indication: VITAMIN SUPPLEMENTATION
     Dates: start: 20200709, end: 20200731
  12. POTASSIUM CHLORIDE. [Concomitant]
     Active Substance: POTASSIUM CHLORIDE
     Indication: MINERAL SUPPLEMENTATION
     Route: 048
     Dates: start: 20200709, end: 20200731
  13. SOLU?MEDROL [Suspect]
     Active Substance: METHYLPREDNISOLONE SODIUM SUCCINATE
     Indication: MYELITIS
     Dosage: 500 MG DAILY, FREQUENCY UNKNOWN
     Route: 041
     Dates: start: 20200709, end: 20200711
  14. SOLU?MEDROL [Suspect]
     Active Substance: METHYLPREDNISOLONE SODIUM SUCCINATE
     Dosage: 60 MG DAILY, FREQUENCY UNKNOWN
     Route: 041
     Dates: start: 20200718, end: 20200720
  15. GABAPENTIN. [Concomitant]
     Active Substance: GABAPENTIN
     Dosage: PC
     Route: 048
     Dates: start: 20200715, end: 20200719
  16. DENGZHANSHENGMAI [Concomitant]
     Indication: ADJUVANT THERAPY
     Route: 048
     Dates: start: 20200709, end: 20200731
  17. HYDROTALCITE [Concomitant]
     Active Substance: HYDROTALCITE
     Indication: PROPHYLAXIS AGAINST GASTROINTESTINAL ULCER
     Route: 048
     Dates: start: 20200716, end: 20200730

REACTIONS (1)
  - Hepatic function abnormal [Recovering/Resolving]

NARRATIVE: CASE EVENT DATE: 20200720
